FAERS Safety Report 18105545 (Version 2)
Quarter: 2020Q3

REPORT INFORMATION
  Report Type: Report from Study
  Country: FR (occurrence: FR)
  Receive Date: 20200803
  Receipt Date: 20200918
  Transmission Date: 20201103
  Serious: Yes (Hospitalization, Other)
  Sender: FDA-Public Use
  Company Number: FR-SA-2020SA196598

PATIENT

DRUGS (4)
  1. NEOFORDEX [Concomitant]
     Active Substance: DEXAMETHASONE ACETATE
     Dosage: 40 MG, 1X
     Route: 048
     Dates: start: 20200526, end: 20200526
  2. PARACETAMOL [Concomitant]
     Active Substance: ACETAMINOPHEN
     Dosage: 1000 MG, 1X
     Route: 048
     Dates: start: 20200526, end: 20200526
  3. ISATUXIMAB [Suspect]
     Active Substance: ISATUXIMAB
     Indication: PLASMA CELL MYELOMA
     Dosage: 10 MG/KG, 1X
     Route: 042
     Dates: start: 20200526, end: 20200526
  4. POLARAMINE [Concomitant]
     Active Substance: DEXCHLORPHENIRAMINE MALEATE
     Indication: ANTIALLERGIC THERAPY
     Dosage: 5 MG, 1X
     Route: 042
     Dates: start: 20200526, end: 20200526

REACTIONS (5)
  - Diarrhoea [Recovered/Resolved]
  - Anaphylactic shock [Recovered/Resolved]
  - Vomiting [Recovered/Resolved]
  - Hypotension [Recovered/Resolved]
  - Loss of consciousness [Recovered/Resolved]

NARRATIVE: CASE EVENT DATE: 20200526
